FAERS Safety Report 5305010-8 (Version None)
Quarter: 2007Q2

REPORT INFORMATION
  Report Type: 
  Country: None (occurrence: None)
  Receive Date: 20070416
  Receipt Date: 20070410
  Transmission Date: 20071010
  Serious: Yes (Hospitalization)
  Sender: FDA-Public Use
  Company Number: 2007SP003050

PATIENT
  Age: 50 Year
  Weight: 124.2856 kg

DRUGS (10)
  1. PEG-INTRON [Suspect]
     Indication: HEPATITIS C
     Dosage: 150 MCG;QW;
     Dates: start: 20060729, end: 20061228
  2. REBETOL [Suspect]
     Indication: HEPATITIS C
     Dosage: 1000 MGL; QD; PO
     Route: 048
     Dates: start: 20060729, end: 20061228
  3. DARVON [Concomitant]
  4. LEXAPRO [Concomitant]
  5. MILK THISTLE [Concomitant]
  6. MOTRIN [Concomitant]
  7. MULTI-VITAMIN [Concomitant]
  8. CALCIUM WITH VITAMIN D [Concomitant]
  9. PROTONIX [Concomitant]
  10. TRIAMTERENE AND HYDROCHLOROTHIAZIDE [Concomitant]

REACTIONS (7)
  - ESCHERICHIA INFECTION [None]
  - HALLUCINATION [None]
  - HYPOKALAEMIA [None]
  - NEPHROLITHIASIS [None]
  - PYELONEPHRITIS [None]
  - VIRAL LOAD INCREASED [None]
  - WEIGHT DECREASED [None]
